FAERS Safety Report 6570495-6 (Version None)
Quarter: 2010Q1

REPORT INFORMATION
  Report Type: 
  Country: None (occurrence: None)
  Receive Date: 20100204
  Receipt Date: 20091009
  Transmission Date: 20100710
  Serious: No
  Sender: FDA-Public Use
  Company Number: A0811694A

PATIENT
  Age: 44 Year
  Sex: Female

DRUGS (4)
  1. ARIXTRA [Suspect]
     Dosage: 7.5MG PER DAY
     Route: 058
  2. COREG [Concomitant]
  3. TORSEMIDE [Concomitant]
  4. LEVOXYL [Concomitant]

REACTIONS (2)
  - BLOOD BLISTER [None]
  - WEIGHT DECREASED [None]
